FAERS Safety Report 7544000-1 (Version None)
Quarter: 2011Q2

REPORT INFORMATION
  Report Type: 
  Country: None (occurrence: None)
  Receive Date: 20110613
  Receipt Date: 20041220
  Transmission Date: 20111010
  Serious: Yes (Hospitalization)
  Sender: FDA-Public Use
  Company Number: PHHO2004JP18374

PATIENT
  Sex: Male
  Weight: 59 kg

DRUGS (4)
  1. GLIMICRON [Concomitant]
     Indication: DIABETES MELLITUS
     Dosage: 20 MG
     Route: 048
     Dates: start: 20000612, end: 20040626
  2. NORVASC [Concomitant]
     Indication: HYPERTENSION
     Dosage: 5 MG DAILY
     Route: 048
     Dates: start: 20031025, end: 20040626
  3. DIOVAN [Suspect]
     Dosage: 80 MG, QD
     Route: 048
     Dates: start: 20030930, end: 20040626
  4. ADALAT CC [Concomitant]
     Indication: HYPERTENSION
     Dates: start: 19990302, end: 20031025

REACTIONS (3)
  - DYSPNOEA EXERTIONAL [None]
  - CARDIAC FAILURE [None]
  - PALPITATIONS [None]
